FAERS Safety Report 12590646 (Version 1)
Quarter: 2016Q3

REPORT INFORMATION
  Report Type: Report from Study
  Country: US (occurrence: US)
  Receive Date: 20160726
  Receipt Date: 20160726
  Transmission Date: 20161109
  Serious: No
  Sender: FDA-Public Use
  Company Number: US-AMGEN-USASL2016093238

PATIENT
  Age: 56 Year
  Sex: Female

DRUGS (1)
  1. ENBREL [Suspect]
     Active Substance: ETANERCEPT
     Indication: RHEUMATOID ARTHRITIS
     Dosage: UNK UNK, ONCE A WEEK
     Route: 065
     Dates: start: 20160327

REACTIONS (5)
  - Musculoskeletal pain [Not Recovered/Not Resolved]
  - Injection site haemorrhage [Unknown]
  - Fatigue [Unknown]
  - Fibromyalgia [Unknown]
  - Pain [Unknown]

NARRATIVE: CASE EVENT DATE: 2016
